FAERS Safety Report 18182818 (Version 3)
Quarter: 2020Q3

REPORT INFORMATION
  Report Type: Spontaneous
  Country: IT (occurrence: IT)
  Receive Date: 20200821
  Receipt Date: 20200922
  Transmission Date: 20201103
  Serious: Yes (Hospitalization)
  Sender: FDA-Public Use
  Company Number: IT-MYLANLABS-2020M1073614

PATIENT
  Age: 36 Year
  Sex: Male

DRUGS (4)
  1. CLOZAPINE. [Suspect]
     Active Substance: CLOZAPINE
     Indication: SCHIZOPHRENIA
     Dosage: 400 MILLIGRAM, QD
     Route: 065
  2. FOLATE [Concomitant]
     Active Substance: FOLATE SODIUM
     Indication: HAEMOGLOBIN DECREASED
     Dosage: 5 MILLIGRAM, QD
     Route: 065
  3. OLANZAPINE. [Concomitant]
     Active Substance: OLANZAPINE
     Indication: PRODUCT USED FOR UNKNOWN INDICATION
     Dosage: 5 MILLIGRAM, QD
     Route: 065
  4. FERROUS SULFATE. [Concomitant]
     Active Substance: FERROUS SULFATE
     Indication: HAEMOGLOBIN DECREASED
     Dosage: 105 MILLIGRAM, QD
     Route: 065

REACTIONS (2)
  - Anaemia [Recovering/Resolving]
  - Aplasia pure red cell [Recovered/Resolved]
